FAERS Safety Report 22082137 (Version 2)
Quarter: 2023Q1

REPORT INFORMATION
  Report Type: Report from Study
  Country: CH (occurrence: CH)
  Receive Date: 20230310
  Receipt Date: 20230329
  Transmission Date: 20230417
  Serious: Yes (Other)
  Sender: FDA-Public Use
  Company Number: CH-BEH-2022153584

PATIENT
  Age: 29 Year
  Sex: Female

DRUGS (3)
  1. HIZENTRA [Suspect]
     Active Substance: HUMAN IMMUNOGLOBULIN G
     Dosage: 8 GRAM, QW
     Route: 058
     Dates: start: 2015
  2. HIZENTRA [Suspect]
     Active Substance: HUMAN IMMUNOGLOBULIN G
     Dosage: UNK UNK, QW
     Route: 058
     Dates: start: 202212
  3. RITUXIMAB [Suspect]
     Active Substance: RITUXIMAB
     Indication: Haemolytic anaemia
     Dosage: UNK
     Route: 042
     Dates: start: 202209

REACTIONS (5)
  - Bronchitis [Recovering/Resolving]
  - Sinusitis [Recovering/Resolving]
  - Cough [Recovering/Resolving]
  - Pneumonia [Not Recovered/Not Resolved]
  - Cough [Not Recovered/Not Resolved]

NARRATIVE: CASE EVENT DATE: 20220901
